FAERS Safety Report 7575268-3 (Version None)
Quarter: 2011Q2

REPORT INFORMATION
  Report Type: 
  Country: None (occurrence: None)
  Receive Date: 20110627
  Receipt Date: 20110622
  Transmission Date: 20111010
  Serious: Yes (Other)
  Sender: FDA-Public Use
  Company Number: US-PFIZER INC-2011120992

PATIENT
  Sex: Female
  Weight: 92.97 kg

DRUGS (1)
  1. GEODON [Suspect]
     Indication: BIPOLAR DISORDER
     Dosage: 40 MG, 1X/DAY
     Route: 048
     Dates: start: 20110509, end: 20110516

REACTIONS (4)
  - OEDEMA PERIPHERAL [None]
  - FLUSHING [None]
  - DYSPNOEA [None]
  - CARDIAC FAILURE CONGESTIVE [None]
